FAERS Safety Report 8328016-3 (Version None)
Quarter: 2012Q2

REPORT INFORMATION
  Report Type: 
  Country: None (occurrence: None)
  Receive Date: 20120502
  Receipt Date: 20120423
  Transmission Date: 20120825
  Serious: Yes (Other)
  Sender: FDA-Public Use
  Company Number: JP-BRISTOL-MYERS SQUIBB COMPANY-16510927

PATIENT
  Age: 90 Year
  Sex: Female

DRUGS (16)
  1. TORSEMIDE [Concomitant]
     Indication: CARDIAC FAILURE
     Route: 048
     Dates: start: 20091225
  2. LANSOPRAZOLE [Concomitant]
     Indication: GASTROOESOPHAGEAL REFLUX DISEASE
     Route: 048
     Dates: start: 20091228
  3. RISPERDAL [Concomitant]
     Indication: DEMENTIA
     Route: 048
     Dates: start: 20111114, end: 20120202
  4. REPAGLINIDE [Suspect]
     Indication: DIABETES MELLITUS
     Route: 048
     Dates: start: 20111201, end: 20111222
  5. LEVOTHYROXINE SODIUM [Concomitant]
     Indication: HYPOTHYROIDISM
     Route: 048
  6. LASIX [Concomitant]
     Indication: CARDIAC FAILURE
     Route: 048
     Dates: start: 20100220
  7. RIMATIL [Concomitant]
     Indication: RHEUMATOID ARTHRITIS
     Route: 048
  8. RISPERDAL [Concomitant]
     Indication: DELIRIUM
     Route: 048
     Dates: start: 20111114, end: 20120202
  9. PROMACTA [Concomitant]
     Indication: GASTRITIS
     Route: 048
     Dates: start: 20111207
  10. PREDNISOLONE [Concomitant]
     Indication: RHEUMATOID ARTHRITIS
     Route: 048
  11. VILDAGLIPTIN [Suspect]
     Indication: DIABETES MELLITUS
     Route: 048
     Dates: start: 20111116, end: 20111222
  12. BISOPROLOL FUMARATE [Concomitant]
     Indication: ANGINA PECTORIS
     Route: 048
     Dates: start: 20100106
  13. DILTIAZEM HCL [Concomitant]
     Indication: ANGINA PECTORIS
     Route: 048
     Dates: start: 20100106
  14. METFORMIN HCL [Suspect]
     Indication: DIABETES MELLITUS
     Route: 048
     Dates: start: 20060712
  15. VOGLIBOSE [Suspect]
     Indication: DIABETES MELLITUS
     Route: 048
     Dates: start: 20080215
  16. TOLEDOMIN [Concomitant]
     Indication: DEPRESSION
     Route: 048
     Dates: start: 20071217, end: 20120202

REACTIONS (2)
  - HYPOGLYCAEMIA [None]
  - URINARY TRACT INFECTION [None]
